FAERS Safety Report 6551302-4 (Version None)
Quarter: 2010Q1

REPORT INFORMATION
  Report Type: 
  Country: None (occurrence: None)
  Receive Date: 20100126
  Receipt Date: 20100114
  Transmission Date: 20100710
  Serious: Yes (Other)
  Sender: FDA-Public Use
  Company Number: US-B.I. PHARMACEUTICALS,INC./RIDGEFIELD-2009-BP-13626BP

PATIENT
  Sex: Male

DRUGS (1)
  1. FLOMAX [Suspect]
     Route: 048

REACTIONS (1)
  - PROSTATE CANCER METASTATIC [None]
